FAERS Safety Report 6875748-X (Version None)
Quarter: 2010Q3

REPORT INFORMATION
  Report Type: 
  Country: None (occurrence: None)
  Receive Date: 20100727
  Receipt Date: 20070702
  Transmission Date: 20110219
  Serious: Yes (Hospitalization, Other)
  Sender: FDA-Public Use
  Company Number: US-PFIZER INC-2006150731

PATIENT
  Sex: Female
  Weight: 79.4 kg

DRUGS (3)
  1. CELEBREX [Suspect]
     Indication: PAIN
     Route: 048
     Dates: start: 20010101
  2. VIOXX [Suspect]
     Indication: PAIN
     Dosage: 1-2 TIMES
     Route: 048
     Dates: start: 20040531
  3. MOBIC [Concomitant]
     Dates: start: 20020218, end: 20050120

REACTIONS (1)
  - CEREBROVASCULAR ACCIDENT [None]
